FAERS Safety Report 10697255 (Version 1)
Quarter: 2015Q1

REPORT INFORMATION
  Report Type: Spontaneous
  Country: US (occurrence: None)
  Receive Date: 20150107
  Receipt Date: 20150107
  Transmission Date: 20150721
  Serious: Yes (Disabling)
  Sender: FDA-Public Use
  Company Number: None

PATIENT
  Age: 30 Year
  Sex: Female
  Weight: 88.45 kg

DRUGS (1)
  1. MIRENA [Suspect]
     Active Substance: LEVONORGESTREL
     Route: 067
     Dates: start: 20140911, end: 20150106

REACTIONS (10)
  - Weight increased [None]
  - Swelling [None]
  - Hypoaesthesia [None]
  - Alopecia [None]
  - Antinuclear antibody positive [None]
  - Musculoskeletal stiffness [None]
  - Impaired work ability [None]
  - Quality of life decreased [None]
  - Pain [None]
  - Arthralgia [None]

NARRATIVE: CASE EVENT DATE: 20150106
